FAERS Safety Report 7302172-8 (Version None)
Quarter: 2011Q1

REPORT INFORMATION
  Report Type: 
  Country: None (occurrence: None)
  Receive Date: 20110218
  Receipt Date: 20110207
  Transmission Date: 20110831
  Serious: Yes (Other)
  Sender: FDA-Public Use
  Company Number: PHHY2010DE35690

PATIENT
  Sex: Female
  Weight: 70 kg

DRUGS (4)
  1. CGS 20267 [Suspect]
     Indication: BREAST CANCER
     Dosage: 2.5 MG DAILY
     Route: 048
     Dates: start: 20090604
  2. LEVOTHYROXINE SODIUM [Concomitant]
     Dosage: 1X DAILY, UNK
     Dates: start: 19950101
  3. ALBUTEROL [Concomitant]
     Dosage: UNK, IF REQUIRED
     Dates: start: 19950101
  4. LEVOTHYROXINE SODIUM [Concomitant]
     Dosage: 50 UG DAILY

REACTIONS (13)
  - HYPERCHOLESTEROLAEMIA [None]
  - HOT FLUSH [None]
  - TYPE 2 DIABETES MELLITUS [None]
  - FATIGUE [None]
  - CARPAL TUNNEL SYNDROME [None]
  - ARTHRALGIA [None]
  - DYSPNOEA EXERTIONAL [None]
  - BREAST DISORDER [None]
  - NAUSEA [None]
  - CONCOMITANT DISEASE AGGRAVATED [None]
  - CATARACT [None]
  - LYMPHOEDEMA [None]
  - HYPOTHYROIDISM [None]
